FAERS Safety Report 18188545 (Version 1)
Quarter: 2020Q3

REPORT INFORMATION
  Report Type: Spontaneous
  Country: ES (occurrence: ES)
  Receive Date: 20200824
  Receipt Date: 20200824
  Transmission Date: 20201103
  Serious: Yes (Other)
  Sender: FDA-Public Use
  Company Number: ES-MYLANLABS-2020M1073700

PATIENT
  Age: 81 Year
  Sex: Male

DRUGS (4)
  1. BEVACIZUMAB. [Suspect]
     Active Substance: BEVACIZUMAB
     Indication: COLORECTAL CANCER METASTATIC
  2. CAPECITABINE. [Suspect]
     Active Substance: CAPECITABINE
     Indication: COLORECTAL CANCER STAGE IV
     Dosage: HE RECEIVED ADJUVANT TREATMENT WITH CAPECITABINE FOR 3 MONTHS DUE TO CARDIAC ISCHEMIA.
     Route: 065
  3. CAPECITABINE. [Suspect]
     Active Substance: CAPECITABINE
     Indication: COLORECTAL CANCER METASTATIC
     Dosage: HE RECEIVED CAPECITABINE PLUS BEVACIZUMAB FOR 12 CYCLES
     Route: 065
  4. BEVACIZUMAB. [Suspect]
     Active Substance: BEVACIZUMAB
     Indication: COLORECTAL CANCER STAGE IV
     Dosage: HE RECEIVED CAPECITABINE PLUS BEVACIZUMAB FOR 12 CYCLES
     Route: 065
     Dates: start: 2014

REACTIONS (1)
  - Drug ineffective [Unknown]
